FAERS Safety Report 8879580 (Version 3)
Quarter: 2012Q4

REPORT INFORMATION
  Report Type: 
  Country: JP (occurrence: JP)
  Receive Date: 20121031
  Receipt Date: 20121220
  Transmission Date: 20130627
  Serious: Yes (Death, Other)
  Sender: FDA-Public Use
  Company Number: JP-OTSUKA-JP-2012-16502

PATIENT
  Age: 76 Year
  Sex: Male
  Weight: 44 kg

DRUGS (3)
  1. PLETAAL [Suspect]
     Indication: PERIPHERAL ARTERIAL OCCLUSIVE DISEASE
     Dosage: 100 Mg milligram(s), bid
     Route: 048
     Dates: start: 20120820, end: 20120927
  2. OPAPROSMON [Concomitant]
     Indication: PERIPHERAL ARTERIAL OCCLUSIVE DISEASE
     Dosage: 15 mcg, daily dose
     Route: 048
     Dates: start: 20120824, end: 20120927
  3. OMEPRAL [Concomitant]
     Indication: GASTRIC MUCOSAL LESION
     Dosage: 10 Mg milligram(s), qd
     Route: 048
     Dates: start: 20120824, end: 20120927

REACTIONS (8)
  - Thrombocytopenia [Fatal]
  - Agranulocytosis [Fatal]
  - Bronchitis [Unknown]
  - Enterocolitis [Unknown]
  - Haemoglobin decreased [None]
  - Haematocrit decreased [None]
  - Sepsis [None]
  - Hypotension [None]
